FAERS Safety Report 19514945 (Version 2)
Quarter: 2021Q3

REPORT INFORMATION
  Report Type: Spontaneous
  Country: US (occurrence: US)
  Receive Date: 20210709
  Receipt Date: 20210805
  Transmission Date: 20211014
  Serious: Yes (Other)
  Sender: FDA-Public Use
  Company Number: US-GE HEALTHCARE LIFE SCIENCES-2021CSU003293

PATIENT
  Age: 70 Year
  Sex: Female

DRUGS (2)
  1. OMNIPAQUE [Suspect]
     Active Substance: IOHEXOL
     Indication: COMPUTERISED TOMOGRAM ABDOMEN
     Dosage: 120 ML AT 2 ML/SEC, ONCE
     Route: 042
     Dates: start: 20210629, end: 20210629
  2. OMNIPAQUE [Suspect]
     Active Substance: IOHEXOL
     Indication: EARLY SATIETY

REACTIONS (3)
  - Neck pain [Recovered/Resolved]
  - Dyspnoea [Recovered/Resolved]
  - Chest pain [Recovered/Resolved]

NARRATIVE: CASE EVENT DATE: 20210629
